FAERS Safety Report 7758916-4 (Version None)
Quarter: 2011Q3

REPORT INFORMATION
  Report Type: 
  Country: None (occurrence: None)
  Receive Date: 20110919
  Receipt Date: 20110909
  Transmission Date: 20111222
  Serious: Yes (Hospitalization)
  Sender: FDA-Public Use
  Company Number: US-ASTELLAS-2011US005282

PATIENT
  Sex: Female

DRUGS (1)
  1. ERLOTINIB HYDROCHLORIDE [Suspect]
     Indication: LUNG CARCINOMA CELL TYPE UNSPECIFIED STAGE 0
     Dosage: 100 MG, UID/QD
     Route: 065
     Dates: start: 20110722

REACTIONS (12)
  - CONSTIPATION [None]
  - VERTIGO [None]
  - SKIN BURNING SENSATION [None]
  - DEHYDRATION [None]
  - DECREASED APPETITE [None]
  - MALNUTRITION [None]
  - PAIN [None]
  - DIARRHOEA [None]
  - DYSPNOEA [None]
  - HOSPICE CARE [None]
  - ANXIETY [None]
  - PRURITUS [None]
